FAERS Safety Report 8815687 (Version 1)
Quarter: 2012Q4

REPORT INFORMATION
  Report Type: 
  Country: US (occurrence: US)
  Receive Date: 20120928
  Receipt Date: 20120928
  Transmission Date: 20130627
  Serious: Yes (Other)
  Sender: FDA-Public Use
  Company Number: US-PFIZER INC-2012237481

PATIENT
  Age: 52 Year
  Sex: Female
  Weight: 143.31 kg

DRUGS (9)
  1. EFFEXOR XR [Suspect]
     Indication: DEPRESSION
     Dosage: 150 mg, 1x/day
     Route: 048
     Dates: start: 2005
  2. NORVASC [Suspect]
     Indication: HYPERTENSION
     Dosage: 5 mg, 1x/day
     Route: 048
  3. PROPRANOLOL [Concomitant]
     Dosage: UNK
  4. LISINOPRIL [Concomitant]
     Dosage: UNK
  5. CLONAZEPAM [Concomitant]
     Dosage: UNK
  6. LAMICTAL [Concomitant]
     Dosage: UNK
  7. BENICAR [Concomitant]
     Dosage: UNK
  8. LASIX [Concomitant]
     Dosage: UNK
  9. PRAVASTATIN [Concomitant]
     Dosage: UNK

REACTIONS (2)
  - Cerebrovascular accident [Unknown]
  - Carotid artery occlusion [Unknown]
